FAERS Safety Report 18693155 (Version 1)
Quarter: 2021Q1

REPORT INFORMATION
  Report Type: Report from Study
  Country: US (occurrence: US)
  Receive Date: 20210104
  Receipt Date: 20210104
  Transmission Date: 20210419
  Serious: No
  Sender: FDA-Public Use
  Company Number: NVSC2020US341702

PATIENT
  Age: 59 Year
  Sex: Female

DRUGS (2)
  1. FARXIGA [Concomitant]
     Active Substance: DAPAGLIFLOZIN PROPANEDIOL
     Indication: PRODUCT USED FOR UNKNOWN INDICATION
     Dosage: UNK (STARTED FARXIGA AT THE SAME TIME AS ENTRESTO)
     Route: 065
  2. ENTRESTO [Suspect]
     Active Substance: SACUBITRIL\VALSARTAN
     Indication: PRODUCT USED FOR UNKNOWN INDICATION
     Dosage: 1 DF (97/103 MG), BID
     Route: 048
     Dates: start: 202011

REACTIONS (7)
  - Restlessness [Unknown]
  - Post-traumatic neck syndrome [Unknown]
  - Scratch [Unknown]
  - Pain [Unknown]
  - Dyspnoea [Recovering/Resolving]
  - Cough [Unknown]
  - Fall [Unknown]

NARRATIVE: CASE EVENT DATE: 202011
